FAERS Safety Report 4894472-6 (Version None)
Quarter: 2006Q1

REPORT INFORMATION
  Report Type: 
  Country: None (occurrence: None)
  Receive Date: 20060123
  Receipt Date: 20060109
  Transmission Date: 20060701
  Serious: Yes (Other)
  Sender: FDA-Public Use
  Company Number: 200509574

PATIENT
  Age: 64 Year
  Sex: Female
  Weight: 58.9676 kg

DRUGS (40)
  1. IMMUNE GLOBULIN INTRAVENOUS (HUMAN) [Suspect]
     Indication: CHRONIC INFLAMMATORY DEMYELINATING POLYRADICULONEUROPATHY
     Dosage: IV
     Route: 042
     Dates: start: 20031128, end: 20031223
  2. IMMUNE GLOBULIN INTRAVENOUS (HUMAN) [Suspect]
     Indication: CHRONIC INFLAMMATORY DEMYELINATING POLYRADICULONEUROPATHY
     Dosage: IV
     Route: 042
     Dates: start: 20041216, end: 20041216
  3. IMMUNE GLOBULIN INTRAVENOUS (HUMAN) [Suspect]
     Indication: CHRONIC INFLAMMATORY DEMYELINATING POLYRADICULONEUROPATHY
     Dosage: IV
     Route: 042
     Dates: start: 20041216, end: 20050113
  4. IMMUNE GLOBULIN INTRAVENOUS (HUMAN) [Suspect]
     Indication: CHRONIC INFLAMMATORY DEMYELINATING POLYRADICULONEUROPATHY
     Dosage: IV
     Route: 042
     Dates: start: 20050113, end: 20050113
  5. IMMUNE GLOBULIN INTRAVENOUS (HUMAN) [Suspect]
     Indication: CHRONIC INFLAMMATORY DEMYELINATING POLYRADICULONEUROPATHY
     Dosage: IV
     Route: 042
     Dates: start: 20050113, end: 20050113
  6. IMMUNE GLOBULIN INTRAVENOUS (HUMAN) [Suspect]
     Indication: CHRONIC INFLAMMATORY DEMYELINATING POLYRADICULONEUROPATHY
     Dosage: IV
     Route: 042
     Dates: start: 20050215, end: 20050215
  7. IMMUNE GLOBULIN INTRAVENOUS (HUMAN) [Suspect]
     Indication: CHRONIC INFLAMMATORY DEMYELINATING POLYRADICULONEUROPATHY
     Dosage: IV
     Route: 042
     Dates: start: 20050315, end: 20050315
  8. IMMUNE GLOBULIN INTRAVENOUS (HUMAN) [Suspect]
     Indication: CHRONIC INFLAMMATORY DEMYELINATING POLYRADICULONEUROPATHY
     Dosage: IV
     Route: 042
     Dates: start: 20050420, end: 20050420
  9. IMMUNE GLOBULIN INTRAVENOUS (HUMAN) [Suspect]
     Indication: CHRONIC INFLAMMATORY DEMYELINATING POLYRADICULONEUROPATHY
     Dosage: IV
     Route: 042
     Dates: start: 20050420, end: 20050420
  10. IMMUNE GLOBULIN INTRAVENOUS (HUMAN) [Suspect]
     Indication: CHRONIC INFLAMMATORY DEMYELINATING POLYRADICULONEUROPATHY
     Dosage: IV
     Route: 042
     Dates: start: 20050516, end: 20050516
  11. IMMUNE GLOBULIN INTRAVENOUS (HUMAN) [Suspect]
     Indication: CHRONIC INFLAMMATORY DEMYELINATING POLYRADICULONEUROPATHY
     Dosage: IV
     Route: 042
     Dates: start: 20050613, end: 20050613
  12. IMMUNE GLOBULIN INTRAVENOUS (HUMAN) [Suspect]
     Indication: CHRONIC INFLAMMATORY DEMYELINATING POLYRADICULONEUROPATHY
     Dosage: IV
     Route: 042
     Dates: start: 20050613, end: 20050613
  13. IMMUNE GLOBULIN INTRAVENOUS (HUMAN) [Suspect]
     Indication: CHRONIC INFLAMMATORY DEMYELINATING POLYRADICULONEUROPATHY
     Dosage: IV
     Route: 042
     Dates: start: 20050705, end: 20050705
  14. IMMUNE GLOBULIN INTRAVENOUS (HUMAN) [Suspect]
     Indication: CHRONIC INFLAMMATORY DEMYELINATING POLYRADICULONEUROPATHY
     Dosage: IV
     Route: 042
     Dates: start: 20050808, end: 20050808
  15. IMMUNE GLOBULIN INTRAVENOUS (HUMAN) [Suspect]
     Indication: CHRONIC INFLAMMATORY DEMYELINATING POLYRADICULONEUROPATHY
     Dosage: IV
     Route: 042
     Dates: start: 20050808, end: 20050808
  16. IMMUNE GLOBULIN INTRAVENOUS (HUMAN) [Suspect]
     Indication: CHRONIC INFLAMMATORY DEMYELINATING POLYRADICULONEUROPATHY
     Dosage: IV
     Route: 042
     Dates: start: 20050912, end: 20050912
  17. IMMUNE GLOBULIN INTRAVENOUS (HUMAN) [Suspect]
     Indication: CHRONIC INFLAMMATORY DEMYELINATING POLYRADICULONEUROPATHY
     Dosage: IV
     Route: 042
     Dates: start: 20051010, end: 20051010
  18. IMMUNE GLOBULIN INTRAVENOUS (HUMAN) [Suspect]
  19. IMMUNE GLOBULIN INTRAVENOUS (HUMAN) [Suspect]
  20. IMMUNE GLOBULIN INTRAVENOUS (HUMAN) [Suspect]
  21. IMMUNE GLOBULIN INTRAVENOUS (HUMAN) [Suspect]
  22. IMMUNE GLOBULIN INTRAVENOUS (HUMAN) [Suspect]
  23. IMMUNE GLOBULIN INTRAVENOUS (HUMAN) [Suspect]
  24. IMMUNE GLOBULIN INTRAVENOUS (HUMAN) [Suspect]
  25. IMMUNE GLOBULIN INTRAVENOUS (HUMAN) [Suspect]
  26. IMMUNE GLOBULIN INTRAVENOUS (HUMAN) [Suspect]
  27. IMMUNE GLOBULIN INTRAVENOUS (HUMAN) [Suspect]
  28. IMMUNE GLOBULIN INTRAVENOUS (HUMAN) [Suspect]
  29. IMMUNE GLOBULIN INTRAVENOUS (HUMAN) [Suspect]
  30. IMMUNE GLOBULIN INTRAVENOUS (HUMAN) [Suspect]
  31. IMMUNE GLOBULIN INTRAVENOUS (HUMAN) [Suspect]
  32. IMMUNE GLOBULIN INTRAVENOUS (HUMAN) [Suspect]
  33. GAMMAR-P I.V. [Suspect]
     Indication: CHRONIC INFLAMMATORY DEMYELINATING POLYRADICULONEUROPATHY
     Dosage: IV
     Route: 042
     Dates: start: 20040126, end: 20041117
  34. FUROSEMIDE [Concomitant]
  35. NEURONTIN [Concomitant]
  36. TORADOL [Concomitant]
  37. ASPIRIN [Concomitant]
  38. ACETAMINOPHEN [Concomitant]
  39. SODIUM CHLORIDE [Concomitant]
  40. HEPARIN LOCK-FLUSH [Concomitant]

REACTIONS (2)
  - HEPATITIS C POSITIVE [None]
  - RASH [None]
